FAERS Safety Report 9335036 (Version 1)
Quarter: 2013Q2

REPORT INFORMATION
  Report Type: Spontaneous
  Country: GB (occurrence: GB)
  Receive Date: 20130606
  Receipt Date: 20130606
  Transmission Date: 20140414
  Serious: Yes (Life-Threatening, Other)
  Sender: FDA-Public Use
  Company Number: PHHY2013GB056352

PATIENT
  Age: 33 Year
  Sex: Male
  Weight: 69.95 kg

DRUGS (5)
  1. AMITRIPTYLINE [Suspect]
     Indication: DEPRESSION
     Dosage: 50 MG, AT NIGHT
     Route: 048
     Dates: start: 20130503
  2. AMITRIPTYLINE [Suspect]
     Dosage: 150 MG, AT NIGHT
     Route: 048
     Dates: end: 20130515
  3. QUETIAPINE [Suspect]
     Indication: MAJOR DEPRESSION
     Dosage: INITIALLY COMMENCED ON 50MG TWICE DAILY, INCREASED OVER 6 DAYS TO 100MG TWICE DAILY
     Route: 048
     Dates: start: 20130503, end: 20130503
  4. CITALOPRAM [Concomitant]
  5. TEMAZEPAM [Concomitant]

REACTIONS (7)
  - Deep vein thrombosis [Not Recovered/Not Resolved]
  - Pulmonary embolism [Not Recovered/Not Resolved]
  - Atelectasis [Not Recovered/Not Resolved]
  - Pain in extremity [Unknown]
  - Chest pain [Unknown]
  - Fibrin D dimer increased [Unknown]
  - Bundle branch block right [Unknown]
